FAERS Safety Report 6867746-7 (Version None)
Quarter: 2010Q3

REPORT INFORMATION
  Report Type: 
  Country: None (occurrence: None)
  Receive Date: 20100722
  Receipt Date: 20100716
  Transmission Date: 20110219
  Serious: Yes (Death)
  Sender: FDA-Public Use
  Company Number: JP-ROCHE-705051

PATIENT
  Sex: Female
  Weight: 40 kg

DRUGS (15)
  1. TOCILIZUMAB [Suspect]
     Indication: RHEUMATOID ARTHRITIS
     Route: 041
     Dates: start: 20090618, end: 20090618
  2. TOCILIZUMAB [Suspect]
     Route: 041
     Dates: start: 20090723, end: 20090723
  3. TOCILIZUMAB [Suspect]
     Route: 041
     Dates: start: 20090827, end: 20090827
  4. TOCILIZUMAB [Suspect]
     Route: 041
     Dates: start: 20091001, end: 20091001
  5. TOCILIZUMAB [Suspect]
     Route: 041
     Dates: start: 20091029, end: 20091029
  6. TOCILIZUMAB [Suspect]
     Route: 041
     Dates: start: 20091126, end: 20091126
  7. TOCILIZUMAB [Suspect]
     Route: 041
     Dates: start: 20091224, end: 20091224
  8. TOCILIZUMAB [Suspect]
     Route: 041
     Dates: start: 20100121, end: 20100121
  9. TOCILIZUMAB [Suspect]
     Route: 041
     Dates: start: 20100218, end: 20100218
  10. TOCILIZUMAB [Suspect]
     Route: 041
     Dates: start: 20100318, end: 20100318
  11. TOCILIZUMAB [Suspect]
     Route: 041
     Dates: start: 20100415, end: 20100415
  12. RIMATIL [Concomitant]
     Route: 048
  13. LOXONIN [Concomitant]
     Dosage: LOXONIN(LOXOPROFEN SODIUM)
     Route: 048
  14. MARZULENE-S [Concomitant]
     Dosage: DOSE FORM: GRANULATED POWDER MARZULENE-S(SODIUM AZULENE SULFONATE L-GLUTAMINE)
     Route: 048
  15. EVISTA [Concomitant]
     Dosage: DRUG: EVISTA TAB 60MG(RALOXIFENE HYDROCHLORIDE)
     Route: 048

REACTIONS (1)
  - DEATH [None]
